FAERS Safety Report 9549527 (Version 2)
Quarter: 2013Q4

REPORT INFORMATION
  Report Type: Report from Study
  Country: VE (occurrence: VE)
  Receive Date: 20130924
  Receipt Date: 20131111
  Transmission Date: 20140711
  Serious: Yes (Death)
  Sender: FDA-Public Use
  Company Number: VE-ABBVIE-13P-178-1150006-00

PATIENT
  Age: 44 Year
  Sex: Male

DRUGS (2)
  1. ZEMPLAR [Suspect]
     Indication: RENAL FAILURE CHRONIC
     Route: 042
     Dates: start: 20120523, end: 20130307
  2. ZEMPLAR [Suspect]
     Indication: RENAL FAILURE

REACTIONS (1)
  - Cardiovascular disorder [Fatal]
